FAERS Safety Report 17849994 (Version 1)
Quarter: 2020Q2

REPORT INFORMATION
  Report Type: Spontaneous
  Country: GB (occurrence: GB)
  Receive Date: 20200602
  Receipt Date: 20200602
  Transmission Date: 20200714
  Serious: Yes (Disabling, Other)
  Sender: FDA-Public Use
  Company Number: GB-TEVA-2020-GB-1242455

PATIENT
  Age: 48 Year
  Sex: Male
  Weight: 95.25 kg

DRUGS (2)
  1. ATORVASTATIN [Suspect]
     Active Substance: ATORVASTATIN
     Indication: TYPE IIA HYPERLIPIDAEMIA
     Dosage: 20 MG
     Route: 048
     Dates: start: 20200130
  2. UBIDECARENONE [Concomitant]
     Active Substance: UBIDECARENONE

REACTIONS (3)
  - Myalgia [Not Recovered/Not Resolved]
  - Asthenia [Unknown]
  - Musculoskeletal pain [Unknown]

NARRATIVE: CASE EVENT DATE: 20200216
